FAERS Safety Report 24308065 (Version 5)
Quarter: 2025Q1

REPORT INFORMATION
  Report Type: Report from Study
  Country: GB (occurrence: GB)
  Receive Date: 20240911
  Receipt Date: 20250214
  Transmission Date: 20250409
  Serious: Yes (Other)
  Sender: SANDOZ
  Company Number: GB-SANDOZ-SDZ2023GB056525

PATIENT
  Sex: Male

DRUGS (5)
  1. HYRIMOZ [Suspect]
     Active Substance: ADALIMUMAB-ADAZ
     Dosage: 40.00 MG, QW(40MG/.4ML)PRE-FILLED PEN
     Route: 058
     Dates: start: 20231103
  2. HYRIMOZ [Suspect]
     Active Substance: ADALIMUMAB-ADAZ
     Indication: Crohn^s disease
     Dosage: 40 MG, Q2W WEEK 0
     Route: 058
     Dates: start: 20231103
  3. HYRIMOZ [Suspect]
     Active Substance: ADALIMUMAB-ADAZ
     Route: 058
  4. HYRIMOZ [Suspect]
     Active Substance: ADALIMUMAB-ADAZ
     Dosage: 40MG/0.4ML SOLUTION FOR INJECTION PRE-FILLED PENS (INJECTS ON A MONDAY WEEKLY)
     Route: 058
  5. IMRALDI [Suspect]
     Active Substance: ADALIMUMAB
     Indication: Product used for unknown indication
     Route: 065

REACTIONS (13)
  - Immunosuppression [Unknown]
  - Heart rate decreased [Unknown]
  - Toothache [Recovered/Resolved]
  - Acne [Unknown]
  - Skin disorder [Unknown]
  - Rhinitis [Not Recovered/Not Resolved]
  - Nasal crusting [Unknown]
  - Eyelid margin crusting [Unknown]
  - Dermatitis atopic [Unknown]
  - Insomnia [Unknown]
  - Rash macular [Unknown]
  - Eye infection viral [Not Recovered/Not Resolved]
  - Eye infection [Unknown]
